FAERS Safety Report 7313860-1 (Version None)
Quarter: 2011Q1

REPORT INFORMATION
  Report Type: 
  Country: None (occurrence: None)
  Receive Date: 20110225
  Receipt Date: 20110215
  Transmission Date: 20110831
  Serious: Yes (Death, Hospitalization)
  Sender: FDA-Public Use
  Company Number: FR-TEVA-267946ISR

PATIENT
  Sex: Female
  Weight: 66.3 kg

DRUGS (6)
  1. LENALIDOMIDE [Suspect]
     Indication: MULTIPLE MYELOMA
     Route: 048
     Dates: start: 20101207
  2. LENALIDOMIDE [Suspect]
     Route: 048
     Dates: start: 20110104
  3. DEXAMETHASONE [Suspect]
     Indication: MULTIPLE MYELOMA
     Dates: start: 20101207
  4. DEXAMETHASONE [Suspect]
     Dates: start: 20110104, end: 20110119
  5. FLUINDIONE [Concomitant]
     Indication: ATRIAL FIBRILLATION
     Route: 048
     Dates: start: 20090101
  6. FLUINDIONE [Concomitant]
     Indication: THROMBOSIS PROPHYLAXIS

REACTIONS (2)
  - EUPHORIC MOOD [None]
  - SEPSIS [None]
